FAERS Safety Report 9524014 (Version 1)
Quarter: 2013Q1

REPORT INFORMATION
  Report Type: Spontaneous
  Country: US (occurrence: None)
  Receive Date: 20130313
  Receipt Date: 20130313
  Transmission Date: 20140127
  Serious: No
  Sender: FDA-Public Use
  Company Number: 1000039837

PATIENT
  Age: 34 Year
  Sex: Female

DRUGS (6)
  1. SAVELLA [Suspect]
     Route: 048
     Dates: start: 20121008, end: 20121008
  2. XANAX (ALPRAZOLAM) (ALPRAZOLAM) [Concomitant]
  3. LORTAB (ACETAMINOPHEN, HYDROCODONE) (ACETAMINOPHEN, HYDROCODONE) [Concomitant]
  4. NUCYNTA (TAPENTADOL HYDROCHLORIDE) (TAPENTADOL HYDROCHLORIDE) [Concomitant]
  5. ADDERALL (OBETROL) (OBETROL) [Concomitant]
  6. INTERMEZZO (ZOLPIDEM TARTRATE) (ZOLPIDEM TARTRATE) [Concomitant]

REACTIONS (1)
  - Nausea [None]
